FAERS Safety Report 9842222 (Version 1)
Quarter: 2014Q1

REPORT INFORMATION
  Report Type: Spontaneous
  Country: FR (occurrence: FR)
  Receive Date: 20140124
  Receipt Date: 20140124
  Transmission Date: 20141002
  Serious: Yes (Hospitalization)
  Sender: FDA-Public Use
  Company Number: FR-009507513-1401FRA007417

PATIENT
  Age: 85 Year
  Sex: Male

DRUGS (12)
  1. JANUMET [Suspect]
     Dosage: UNK
     Route: 048
     Dates: end: 20130515
  2. METFORMIN [Suspect]
     Dosage: 1000 MG, QD
     Route: 048
     Dates: end: 20130515
  3. FUROSEMIDE [Concomitant]
  4. LERCAPRESS (ENALAPRIL MALEATE (+) LERCANIDIPINE HYDROCHLORIDE) [Concomitant]
  5. IKOREL [Concomitant]
  6. DIAFUSOR [Concomitant]
  7. CRESTOR [Concomitant]
  8. ATENOLOL [Concomitant]
  9. PREVISCAN [Concomitant]
  10. ALLOPURINOL [Concomitant]
  11. INIPOMP [Concomitant]
  12. ALPRAZOLAM [Concomitant]
     Dosage: 0.25 MG, QPM
     Dates: start: 20130513

REACTIONS (1)
  - Hypoglycaemic coma [Recovered/Resolved]
